FAERS Safety Report 24183993 (Version 1)
Quarter: 2024Q3

REPORT INFORMATION
  Report Type: Spontaneous
  Country: US (occurrence: None)
  Receive Date: 20240806
  Receipt Date: 20240806
  Transmission Date: 20241017
  Serious: Yes (Other)
  Sender: Public
  Company Number: None

PATIENT
  Age: 36 Year
  Sex: Female
  Weight: 80.1 kg

DRUGS (1)
  1. OZEMPIC [Suspect]
     Active Substance: SEMAGLUTIDE
     Indication: Weight abnormal
     Dosage: 1.0 MG ONCE WEEKLY SUBCUTANEOUS
     Route: 058
     Dates: start: 20230508, end: 20240730

REACTIONS (3)
  - Depressed mood [None]
  - Apathy [None]
  - Therapy cessation [None]

NARRATIVE: CASE EVENT DATE: 20240806
